FAERS Safety Report 7451876-5 (Version None)
Quarter: 2011Q2

REPORT INFORMATION
  Report Type: 
  Country: None (occurrence: None)
  Receive Date: 20110502
  Receipt Date: 20110426
  Transmission Date: 20111010
  Serious: Yes (Other)
  Sender: FDA-Public Use
  Company Number: US-AMGEN-USASP2011014926

PATIENT
  Sex: Male
  Weight: 63.946 kg

DRUGS (6)
  1. TYLENOL (CAPLET) [Concomitant]
     Dosage: 1000 MG, UNK
  2. DIPHENHYDRAMINE [Concomitant]
     Dosage: 25 MG, UNK
  3. RITUXAN [Concomitant]
  4. PREDNISONE [Concomitant]
  5. INSULIN [Concomitant]
  6. NPLATE [Suspect]
     Indication: IDIOPATHIC THROMBOCYTOPENIC PURPURA
     Dosage: 7 A?G/KG, QWK
     Dates: start: 20110128

REACTIONS (4)
  - PLATELET COUNT DECREASED [None]
  - SYSTEMIC INFLAMMATORY RESPONSE SYNDROME [None]
  - THROMBOSIS [None]
  - CYTOMEGALOVIRUS TEST POSITIVE [None]
